FAERS Safety Report 4933929-6 (Version None)
Quarter: 2006Q1

REPORT INFORMATION
  Report Type: 
  Country: None (occurrence: None)
  Receive Date: 20060301
  Receipt Date: 20060217
  Transmission Date: 20060701
  Serious: Yes (Other)
  Sender: FDA-Public Use
  Company Number: 2006024155

PATIENT
  Age: 63 Year
  Sex: Female
  Weight: 54.4316 kg

DRUGS (1)
  1. NEURONTIN [Suspect]
     Indication: NEUROPATHY
     Dates: start: 20010101

REACTIONS (27)
  - ANXIETY [None]
  - BURNING SENSATION [None]
  - CARDIAC ARREST [None]
  - CORONARY ARTERY OCCLUSION [None]
  - DIZZINESS [None]
  - DYSPHAGIA [None]
  - EYE DISORDER [None]
  - FEELING ABNORMAL [None]
  - FEELING COLD [None]
  - GASTROINTESTINAL MUCOSAL DISORDER [None]
  - HEADACHE [None]
  - HYPERCHLORHYDRIA [None]
  - HYPERHIDROSIS [None]
  - IATROGENIC INJURY [None]
  - IMPAIRED GASTRIC EMPTYING [None]
  - INCREASED UPPER AIRWAY SECRETION [None]
  - INTUBATION COMPLICATION [None]
  - LETHARGY [None]
  - NERVOUSNESS [None]
  - PAIN [None]
  - PROCEDURAL COMPLICATION [None]
  - SKIN TIGHTNESS [None]
  - THINKING ABNORMAL [None]
  - THROAT TIGHTNESS [None]
  - UNEVALUABLE EVENT [None]
  - VISION BLURRED [None]
  - WEIGHT DECREASED [None]
